FAERS Safety Report 19116211 (Version 2)
Quarter: 2021Q2

REPORT INFORMATION
  Report Type: Spontaneous
  Country: US (occurrence: US)
  Receive Date: 20210409
  Receipt Date: 20210419
  Transmission Date: 20210717
  Serious: Yes (Other)
  Sender: FDA-Public Use
  Company Number: US-DRREDDYS-USA/USA/21/0133830

PATIENT
  Age: 15 Year
  Sex: Male

DRUGS (14)
  1. DEXAMETHASONE SODIUM PHOSPHATE INJECTION, 4 MG/ML [Suspect]
     Active Substance: DEXAMETHASONE SODIUM PHOSPHATE
     Dosage: WEEK 1, 2, 3, 4
  2. DEXAMETHASONE SODIUM PHOSPHATE INJECTION, 4 MG/ML [Suspect]
     Active Substance: DEXAMETHASONE SODIUM PHOSPHATE
     Dosage: WEEK 9?14
  3. DEXAMETHASONE SODIUM PHOSPHATE INJECTION, 4 MG/ML [Suspect]
     Active Substance: DEXAMETHASONE SODIUM PHOSPHATE
     Indication: HAEMOPHAGOCYTIC LYMPHOHISTIOCYTOSIS
     Dosage: WEEK 5, 6
  4. DEXAMETHASONE SODIUM PHOSPHATE INJECTION, 4 MG/ML [Suspect]
     Active Substance: DEXAMETHASONE SODIUM PHOSPHATE
     Dosage: WEEK 7, 8
  5. ETOPOSIDE. [Suspect]
     Active Substance: ETOPOSIDE
     Dosage: WEEK 5 (TWICE WEEKLY)
  6. METHOTREXATE. [Concomitant]
     Active Substance: METHOTREXATE
     Indication: HAEMOPHAGOCYTIC LYMPHOHISTIOCYTOSIS
  7. EMAPALUMAB [Suspect]
     Active Substance: EMAPALUMAB
     Indication: HAEMOPHAGOCYTIC LYMPHOHISTIOCYTOSIS
     Dosage: 2.7 MG/KG/DOSE TWICE A WEEK (WEEK 4 AND 5, 8, 9)
  8. PENTAMIDINE [Concomitant]
     Active Substance: PENTAMIDINE
     Indication: PROPHYLAXIS
  9. POSACONAZOLE [Concomitant]
     Active Substance: POSACONAZOLE
     Indication: PROPHYLAXIS
  10. EMAPALUMAB [Suspect]
     Active Substance: EMAPALUMAB
     Dosage: TWICE A WEEK (WEEK 10 AND11)
  11. METHOTREXATE. [Concomitant]
     Active Substance: METHOTREXATE
     Indication: NERVOUS SYSTEM DISORDER PROPHYLAXIS
     Dosage: ON WEEK 2, 3, 4, 5, 10 AND 11
     Route: 037
  12. ETOPOSIDE. [Suspect]
     Active Substance: ETOPOSIDE
     Indication: HAEMOPHAGOCYTIC LYMPHOHISTIOCYTOSIS
     Dosage: ON WEEK 1, 4, 6
  13. ETOPOSIDE. [Suspect]
     Active Substance: ETOPOSIDE
     Dosage: WEEK 2 (50% DOSE)
  14. EMAPALUMAB [Suspect]
     Active Substance: EMAPALUMAB
     Dosage: 2.7 MG/KG/DOSE ONCE A WEEK (WEEK 6)

REACTIONS (2)
  - Musculoskeletal chest pain [Recovered/Resolved]
  - Staphylococcal bacteraemia [Recovered/Resolved]
